FAERS Safety Report 5866991-7 (Version None)
Quarter: 2008Q3

REPORT INFORMATION
  Report Type: 
  Country: None (occurrence: None)
  Receive Date: 20080902
  Receipt Date: 20080822
  Transmission Date: 20090109
  Serious: Yes (Hospitalization)
  Sender: FDA-Public Use
  Company Number: A0730281A

PATIENT
  Age: 49 Year
  Sex: Female
  Weight: 83.2 kg

DRUGS (3)
  1. AVANDIA [Suspect]
     Dosage: 8MG TWICE PER DAY
     Route: 048
     Dates: start: 20040101, end: 20060101
  2. AVANDAMET [Suspect]
     Dosage: 2MG PER DAY
     Dates: start: 20041201, end: 20050101
  3. STARLIX [Concomitant]
     Dates: start: 20041022, end: 20071103

REACTIONS (2)
  - MYOCARDIAL INFARCTION [None]
  - PAIN [None]
